FAERS Safety Report 18455187 (Version 1)
Quarter: 2020Q4

REPORT INFORMATION
  Report Type: Other
  Country: US (occurrence: US)
  Receive Date: 20201103
  Receipt Date: 20201103
  Transmission Date: 20210114
  Serious: Yes (Other)
  Sender: FDA-Public Use
  Company Number: US-ROCHE-2694741

PATIENT
  Age: 58 Year
  Sex: Female
  Weight: 68 kg

DRUGS (13)
  1. LIPITOR [Concomitant]
     Active Substance: ATORVASTATIN CALCIUM
     Route: 048
  2. EFFEXOR XR [Concomitant]
     Active Substance: VENLAFAXINE HYDROCHLORIDE
     Route: 048
  3. OCREVUS [Suspect]
     Active Substance: OCRELIZUMAB
     Indication: PRIMARY PROGRESSIVE MULTIPLE SCLEROSIS
     Route: 042
     Dates: start: 20171001
  4. OCREVUS [Suspect]
     Active Substance: OCRELIZUMAB
     Indication: RELAPSING-REMITTING MULTIPLE SCLEROSIS
     Dosage: IN 0.9 % SODIUM CHLORIDE 250 ML INFUSION
     Route: 042
  5. PROVIGIL [Concomitant]
     Active Substance: MODAFINIL
     Route: 048
  6. EFFEXOR XR [Concomitant]
     Active Substance: VENLAFAXINE HYDROCHLORIDE
     Route: 048
  7. BUSPAR [Concomitant]
     Active Substance: BUSPIRONE HYDROCHLORIDE
     Route: 048
  8. LASIX [Concomitant]
     Active Substance: FUROSEMIDE
     Route: 048
  9. CRANBERRY. [Concomitant]
     Active Substance: CRANBERRY
     Route: 048
  10. MYCOSTATIN [Concomitant]
     Active Substance: NYSTATIN
  11. VITAMIN C [Concomitant]
     Active Substance: ASCORBIC ACID
     Route: 048
  12. TYLENOL [Concomitant]
     Active Substance: ACETAMINOPHEN
     Indication: PAIN
     Route: 048
  13. LIORESAL [Concomitant]
     Active Substance: BACLOFEN
     Dosage: 2000 MCG/ML INJECTION,
     Route: 037

REACTIONS (7)
  - Arthralgia [Unknown]
  - Change of bowel habit [Unknown]
  - Fall [Unknown]
  - Sepsis [Unknown]
  - Lower limb fracture [Unknown]
  - Cystitis [Unknown]
  - Diarrhoea [Unknown]

NARRATIVE: CASE EVENT DATE: 20190609
